FAERS Safety Report 6581121-4 (Version None)
Quarter: 2010Q1

REPORT INFORMATION
  Report Type: 
  Country: None (occurrence: None)
  Receive Date: 20100215
  Receipt Date: 20100209
  Transmission Date: 20100710
  Serious: Yes (Death)
  Sender: FDA-Public Use
  Company Number: PHHY2009JP60148

PATIENT
  Sex: Female

DRUGS (8)
  1. ZOLEDRONATE T29581+ [Suspect]
     Indication: METASTASES TO BONE
     Dosage: 4 MG EVERY 4 WEEKS
     Route: 042
     Dates: start: 20070312, end: 20080312
  2. ZOLEDRONATE T29581+ [Suspect]
     Dosage: 4 MG, TIW
     Route: 042
     Dates: start: 20080312, end: 20080829
  3. FARMORUBICIN HL [Concomitant]
     Dosage: 120 MG, UNK
     Route: 042
     Dates: start: 20070308, end: 20070802
  4. 5-FU [Concomitant]
     Dosage: 750 MG, UNK
     Route: 042
     Dates: start: 20070308, end: 20070802
  5. ENDOXAN [Concomitant]
     Dosage: 800 MG, UNK
     Route: 042
     Dates: start: 20070308, end: 20070802
  6. TAXOL [Concomitant]
     Dosage: 100 MG, UNK
     Route: 042
     Dates: start: 20080312, end: 20080514
  7. NAVELBINE [Concomitant]
     Dosage: 40 MG, UNK
     Route: 042
     Dates: start: 20080612, end: 20080630
  8. MAGMITT [Concomitant]
     Dosage: 990 MG, UNK
     Route: 048
     Dates: start: 20080709, end: 20080829

REACTIONS (1)
  - MALIGNANT NEOPLASM PROGRESSION [None]
